FAERS Safety Report 8186831-3 (Version None)
Quarter: 2012Q1

REPORT INFORMATION
  Report Type: 
  Country: None (occurrence: None)
  Receive Date: 20120301
  Receipt Date: 20120216
  Transmission Date: 20120608
  Serious: Yes (Life-Threatening)
  Sender: FDA-Public Use
  Company Number: 2012SP008763

PATIENT
  Age: 44 Year
  Sex: Female

DRUGS (3)
  1. DEPAKENE [Concomitant]
  2. ASENAPINE (ASENAPINE /05706901/) [Suspect]
     Indication: BIPOLAR DISORDER
     Dosage: 5 MG;SL
     Route: 060
     Dates: start: 20120119, end: 20120119
  3. DALMADORM [Concomitant]

REACTIONS (4)
  - HYPOTENSION [None]
  - SYNCOPE [None]
  - CRANIOCEREBRAL INJURY [None]
  - FALL [None]
